FAERS Safety Report 22631610 (Version 2)
Quarter: 2023Q2

REPORT INFORMATION
  Report Type: Report from Study
  Country: US (occurrence: US)
  Receive Date: 20230623
  Receipt Date: 20230623
  Transmission Date: 20230721
  Serious: No
  Sender: FDA-Public Use
  Company Number: US-002147023-NVSC2023US139050

PATIENT
  Sex: Female

DRUGS (14)
  1. TRIAMCINOLONE [Suspect]
     Active Substance: TRIAMCINOLONE
     Indication: Hidradenitis
     Dosage: UNK
     Route: 065
  2. CARVEDILOL [Suspect]
     Active Substance: CARVEDILOL
     Indication: Hidradenitis
     Dosage: UNK
     Route: 065
  3. RANITIDINE [Suspect]
     Active Substance: RANITIDINE
     Indication: Hidradenitis
     Dosage: UNK
     Route: 065
  4. VOLTAREN [Suspect]
     Active Substance: DICLOFENAC SODIUM
     Indication: Hidradenitis
     Dosage: UNK
     Route: 065
  5. PHENTERMINE [Suspect]
     Active Substance: PHENTERMINE
     Indication: Hidradenitis
     Dosage: UNK
     Route: 065
  6. CETIRIZINE [Suspect]
     Active Substance: CETIRIZINE HYDROCHLORIDE
     Indication: Hidradenitis
     Dosage: UNK
     Route: 065
  7. CLINDAMYCIN [Suspect]
     Active Substance: CLINDAMYCIN
     Indication: Hidradenitis
     Dosage: UNK
     Route: 065
  8. RABEPRAZOLE SODIUM [Suspect]
     Active Substance: RABEPRAZOLE SODIUM
     Indication: Hidradenitis
     Dosage: UNK
     Route: 065
  9. HYDROCHLOROTHIAZIDE [Suspect]
     Active Substance: HYDROCHLOROTHIAZIDE
     Indication: Hidradenitis
     Dosage: UNK
     Route: 065
  10. DOXYCYCLINE HYCLATE [Suspect]
     Active Substance: DOXYCYCLINE HYCLATE
     Indication: Hidradenitis
     Dosage: UNK
     Route: 065
  11. FAMOTIDINE [Suspect]
     Active Substance: FAMOTIDINE
     Indication: Hidradenitis
     Dosage: UNK
     Route: 065
  12. SPIRONOLACTONE [Suspect]
     Active Substance: SPIRONOLACTONE
     Indication: Hidradenitis
     Dosage: UNK
     Route: 065
  13. GABAPENTIN [Suspect]
     Active Substance: GABAPENTIN
     Indication: Hidradenitis
     Dosage: UNK
     Route: 065
  14. NABUMETONE [Suspect]
     Active Substance: NABUMETONE
     Indication: Hidradenitis
     Dosage: UNK
     Route: 065

REACTIONS (3)
  - Condition aggravated [Unknown]
  - Hidradenitis [Unknown]
  - Drug ineffective [Unknown]
